FAERS Safety Report 7212459-5 (Version None)
Quarter: 2011Q1

REPORT INFORMATION
  Report Type: 
  Country: None (occurrence: None)
  Receive Date: 20110106
  Receipt Date: 20101109
  Transmission Date: 20110831
  Serious: Yes (Hospitalization)
  Sender: FDA-Public Use
  Company Number: US-GENZYME-THYM-1001507

PATIENT
  Sex: Male

DRUGS (7)
  1. THYMOGLOBULIN [Suspect]
     Dosage: 125 MG, QD
     Route: 042
     Dates: start: 20100903, end: 20100903
  2. MYCOPHENOLATE MOFETIL [Concomitant]
     Indication: IMMUNOSUPPRESSION
     Dosage: UNK MG, QD
     Route: 065
  3. CORTICOSTEROIDS [Concomitant]
     Indication: IMMUNOSUPPRESSION
     Dosage: UNK MG, QID
     Route: 065
  4. THYMOGLOBULIN [Suspect]
     Indication: PROPHYLAXIS AGAINST TRANSPLANT REJECTION
     Dosage: 125 MG, QD
     Route: 042
     Dates: start: 20100501, end: 20100503
  5. ANTIVIRALS NOS [Concomitant]
     Indication: ANTIVIRAL TREATMENT
     Dosage: UNK
  6. FUROSEMIDE [Concomitant]
     Indication: PRODUCT USED FOR UNKNOWN INDICATION
     Route: 065
  7. THYMOGLOBULIN [Suspect]
     Dosage: 125 MG, QD
     Route: 042
     Dates: start: 20100901, end: 20100901

REACTIONS (1)
  - LIVER TRANSPLANT REJECTION [None]
